FAERS Safety Report 15604100 (Version 1)
Quarter: 2018Q4

REPORT INFORMATION
  Report Type: Spontaneous
  Country: CN (occurrence: CN)
  Receive Date: 20181110
  Receipt Date: 20181110
  Transmission Date: 20190205
  Serious: Yes (Hospitalization, Other)
  Sender: FDA-Public Use
  Company Number: CN-JNJFOC-20181100176

PATIENT
  Age: 4 Year
  Sex: Female
  Weight: 22 kg

DRUGS (3)
  1. MOTRIN [Suspect]
     Active Substance: IBUPROFEN
     Indication: PYREXIA
     Route: 048
     Dates: start: 20180826, end: 20180901
  2. MOTRIN [Suspect]
     Active Substance: IBUPROFEN
     Route: 048
  3. MEZLOCILLIN SODIUM [Concomitant]
     Active Substance: MEZLOCILLIN SODIUM
     Indication: INFECTION
     Route: 041
     Dates: start: 20180831, end: 20180831

REACTIONS (2)
  - Hepatic function abnormal [Recovering/Resolving]
  - Incorrect dose administered [Unknown]

NARRATIVE: CASE EVENT DATE: 20180826
